FAERS Safety Report 4295381-6 (Version None)
Quarter: 2004Q1

REPORT INFORMATION
  Report Type: 
  Country: None (occurrence: None)
  Receive Date: 20040216
  Receipt Date: 20030708
  Transmission Date: 20041129
  Serious: Yes (Other)
  Sender: FDA-Public Use
  Company Number: US-GLAXOSMITHKLINE-A0415843A

PATIENT

DRUGS (2)
  1. LAMICTAL [Suspect]
     Route: 048
  2. GREEN TEA [Concomitant]

REACTIONS (1)
  - CONVULSION [None]
